FAERS Safety Report 24016881 (Version 1)
Quarter: 2024Q2

REPORT INFORMATION
  Report Type: Spontaneous
  Country: US (occurrence: US)
  Receive Date: 20240626
  Receipt Date: 20240626
  Transmission Date: 20240716
  Serious: Yes (Death, Life-Threatening, Hospitalization, Other)
  Sender: FDA-Public Use
  Company Number: US-MLMSERVICE-20240403-PI012015-00043-1

PATIENT

DRUGS (1)
  1. ALLOPURINOL [Suspect]
     Active Substance: ALLOPURINOL
     Indication: Gout
     Dosage: UNKNOWN
     Route: 065

REACTIONS (9)
  - Condition aggravated [Fatal]
  - Encephalopathy [Fatal]
  - Drug reaction with eosinophilia and systemic symptoms [Fatal]
  - Acute kidney injury [Fatal]
  - Staphylococcal bacteraemia [Fatal]
  - Immune thrombocytopenia [Fatal]
  - Septic shock [Fatal]
  - Acute respiratory distress syndrome [Fatal]
  - Acute hepatic failure [Fatal]
